FAERS Safety Report 7561400-4 (Version None)
Quarter: 2011Q2

REPORT INFORMATION
  Report Type: 
  Country: None (occurrence: None)
  Receive Date: 20110621
  Receipt Date: 20100923
  Transmission Date: 20111010
  Serious: No
  Sender: FDA-Public Use
  Company Number: US-ASTRAZENECA-2010SE45022

PATIENT
  Age: 608 Month
  Sex: Female

DRUGS (1)
  1. PULMICORT FLEXHALER [Suspect]
     Indication: ASTHMA
     Route: 055

REACTIONS (5)
  - ASTHMA [None]
  - NASOPHARYNGITIS [None]
  - LOSS OF CONSCIOUSNESS [None]
  - DRUG DOSE OMISSION [None]
  - PERTUSSIS [None]
